FAERS Safety Report 10471797 (Version 1)
Quarter: 2014Q3

REPORT INFORMATION
  Report Type: Spontaneous
  Country: DE (occurrence: DE)
  Receive Date: 20140924
  Receipt Date: 20140924
  Transmission Date: 20150326
  Serious: Yes (Other)
  Sender: FDA-Public Use
  Company Number: DE-AUROBINDO-AUR-APL-2014-10120

PATIENT
  Sex: Female

DRUGS (1)
  1. GABAPENTIN AUROBINDO HARD CAPSULE 300MG [Suspect]
     Active Substance: GABAPENTIN
     Indication: PRODUCT USED FOR UNKNOWN INDICATION
     Route: 065

REACTIONS (2)
  - Vulvovaginal candidiasis [Unknown]
  - Gastrointestinal fungal infection [None]
